FAERS Safety Report 7452008-X (Version None)
Quarter: 2011Q2

REPORT INFORMATION
  Report Type: 
  Country: None (occurrence: None)
  Receive Date: 20110502
  Receipt Date: 20110427
  Transmission Date: 20111010
  Serious: Yes (Death, Hospitalization)
  Sender: FDA-Public Use
  Company Number: FR-SANOFI-AVENTIS-2011SA025766

PATIENT
  Age: 85 Year
  Sex: Male

DRUGS (12)
  1. SECTRAL [Concomitant]
  2. INSULIN [Concomitant]
  3. TAXOTERE [Suspect]
     Dates: start: 20110114, end: 20110114
  4. IMOVANE [Concomitant]
  5. RAMIPRIL [Concomitant]
     Dates: start: 20110218, end: 20110223
  6. TAXOTERE [Suspect]
     Dates: start: 20110211, end: 20110211
  7. TAHOR [Concomitant]
  8. ASPEGIC 325 [Concomitant]
  9. TAXOTERE [Suspect]
     Dates: start: 20110204, end: 20110204
  10. RAMIPRIL [Concomitant]
  11. TAXOTERE [Suspect]
     Dates: start: 20110121, end: 20110121
  12. ASPEGIC 325 [Concomitant]
     Dates: start: 20110218, end: 20110223

REACTIONS (6)
  - NEUTROPENIA [None]
  - COLITIS ULCERATIVE [None]
  - ABDOMINAL PAIN [None]
  - ANAEMIA [None]
  - PYREXIA [None]
  - DIARRHOEA [None]
